FAERS Safety Report 21695761 (Version 1)
Quarter: 2022Q4

REPORT INFORMATION
  Report Type: Spontaneous
  Country: US (occurrence: None)
  Receive Date: 20221206
  Receipt Date: 20221206
  Transmission Date: 20230113
  Serious: Yes (Death)
  Sender: FDA-Public Use
  Company Number: None

PATIENT
  Sex: Male

DRUGS (13)
  1. ARALAST NP [Suspect]
     Active Substance: .ALPHA.1-PROTEINASE INHIBITOR HUMAN
     Indication: Alpha-1 antitrypsin deficiency
     Route: 042
     Dates: start: 20210120, end: 20221205
  2. AZITHROMYCIN [Concomitant]
     Active Substance: AZITHROMYCIN
  3. EPINEPHRINE [Concomitant]
  4. HYO POUCPM SUS [Concomitant]
  5. LOSARTAN POTASSIUM [Concomitant]
     Active Substance: LOSARTAN POTASSIUM
  6. MULTIPLE VIT [Concomitant]
  7. IRON [Concomitant]
     Active Substance: IRON
  8. OMEPRAZOLE [Concomitant]
     Active Substance: OMEPRAZOLE
  9. PREDNISONE [Concomitant]
     Active Substance: PREDNISONE
  10. SOD CHL0.9% [Concomitant]
  11. TRELEGY AER [Concomitant]
  12. ELLIPTA [Concomitant]
  13. VITAMIN D3 [Concomitant]
     Active Substance: CHOLECALCIFEROL

REACTIONS (1)
  - Death [None]
